FAERS Safety Report 9853950 (Version 1)
Quarter: 2014Q1

REPORT INFORMATION
  Report Type: Spontaneous
  Country: US (occurrence: US)
  Receive Date: 20140129
  Receipt Date: 20140129
  Transmission Date: 20141002
  Serious: No
  Sender: FDA-Public Use
  Company Number: US-PFIZER INC-2014026199

PATIENT
  Age: 89 Year
  Sex: Female
  Weight: 65.76 kg

DRUGS (3)
  1. LYRICA [Suspect]
     Indication: NEUROPATHY PERIPHERAL
     Dosage: 75 MG, 3X/DAY
  2. LANTUS [Concomitant]
     Indication: DIABETES MELLITUS
     Dosage: 25 IU, UNK
  3. GLYBURIDE [Concomitant]
     Indication: DIABETES MELLITUS
     Dosage: UNK, DAILY

REACTIONS (5)
  - Rash [Unknown]
  - Balance disorder [Unknown]
  - Contusion [Unknown]
  - Muscular weakness [Unknown]
  - Fall [Unknown]
